FAERS Safety Report 14495116 (Version 2)
Quarter: 2018Q1

REPORT INFORMATION
  Report Type: Spontaneous
  Country: US (occurrence: US)
  Receive Date: 20180206
  Receipt Date: 20180326
  Transmission Date: 20180509
  Serious: No
  Sender: FDA-Public Use
  Company Number: US-BIOGEN-2018BI00519320

PATIENT
  Sex: Female

DRUGS (2)
  1. AVONEX [Suspect]
     Active Substance: INTERFERON BETA-1A
     Indication: MULTIPLE SCLEROSIS
     Route: 065
     Dates: start: 20020522
  2. AVONEX [Suspect]
     Active Substance: INTERFERON BETA-1A
     Route: 030

REACTIONS (6)
  - Sinus disorder [Not Recovered/Not Resolved]
  - Carpal tunnel syndrome [Unknown]
  - Multiple sclerosis [Unknown]
  - Limb mass [Unknown]
  - Scar [Not Recovered/Not Resolved]
  - Feeling abnormal [Unknown]
